FAERS Safety Report 9094378 (Version 1)
Quarter: 2013Q1

REPORT INFORMATION
  Report Type: Report from Study
  Country: US (occurrence: US)
  Receive Date: 20130131
  Receipt Date: 20130131
  Transmission Date: 20140127
  Serious: No
  Sender: FDA-Public Use
  Company Number: US-ABBOTT-12P-163-1011673-00

PATIENT
  Sex: Male

DRUGS (2)
  1. HUMIRA [Suspect]
  2. PREDNISONE [Concomitant]
     Indication: PRODUCT USED FOR UNKNOWN INDICATION

REACTIONS (4)
  - Splenomegaly [Unknown]
  - Muscle twitching [Recovered/Resolved]
  - Nodule [Unknown]
  - Blood iron decreased [Unknown]
